FAERS Safety Report 9253506 (Version 1)
Quarter: 2013Q2

REPORT INFORMATION
  Report Type: Spontaneous
  Country: US (occurrence: US)
  Receive Date: 20130425
  Receipt Date: 20130425
  Transmission Date: 20140414
  Serious: No
  Sender: FDA-Public Use
  Company Number: US-BIOGENIDEC-2013BI036104

PATIENT
  Age: 52 Year
  Sex: Female

DRUGS (2)
  1. TYSABRI [Suspect]
     Indication: CROHN^S DISEASE
     Route: 042
     Dates: start: 20080402
  2. PREDNISONE [Concomitant]

REACTIONS (3)
  - Joint dislocation [Not Recovered/Not Resolved]
  - Panic attack [Unknown]
  - Osteoporosis [Not Recovered/Not Resolved]
